FAERS Safety Report 9401021 (Version 1)
Quarter: 2013Q3

REPORT INFORMATION
  Report Type: Spontaneous
  Country: US (occurrence: US)
  Receive Date: 20130715
  Receipt Date: 20130715
  Transmission Date: 20140515
  Serious: No
  Sender: FDA-Public Use
  Company Number: US-BAYER-2013-085779

PATIENT
  Age: 56 Year
  Sex: Male
  Weight: 85.71 kg

DRUGS (2)
  1. ALEVE CAPLET [Suspect]
     Dosage: 2 DF IN MORNING, 1DF AT NIGHT
     Route: 048
     Dates: start: 201307, end: 20130709
  2. CENTRUM [Concomitant]
     Dosage: UNK

REACTIONS (1)
  - Urticaria [Not Recovered/Not Resolved]
